FAERS Safety Report 6373451-6 (Version None)
Quarter: 2009Q3

REPORT INFORMATION
  Report Type: 
  Country: None (occurrence: None)
  Receive Date: 20090924
  Receipt Date: 20090305
  Transmission Date: 20100115
  Serious: Yes (Other)
  Sender: FDA-Public Use
  Company Number: US-ASTRAZENECA-2009UW05902

PATIENT
  Age: 55 Year
  Sex: Male

DRUGS (4)
  1. SEROQUEL [Suspect]
     Route: 048
  2. ABILIFY [Concomitant]
     Dosage: 15 MG
  3. TRAZODONE HCL [Concomitant]
  4. AMBIEN [Concomitant]

REACTIONS (2)
  - PAIN IN EXTREMITY [None]
  - PANCREATITIS [None]
